FAERS Safety Report 21779985 (Version 2)
Quarter: 2022Q4

REPORT INFORMATION
  Report Type: Report from Study
  Country: CA (occurrence: CA)
  Receive Date: 20221226
  Receipt Date: 20221229
  Transmission Date: 20230112
  Serious: Yes (Other)
  Sender: FDA-Public Use
  Company Number: CA-ABBVIE-4244608

PATIENT
  Sex: Male

DRUGS (2)
  1. HUMIRA [Suspect]
     Active Substance: ADALIMUMAB
     Indication: Crohn^s disease
     Dosage: FORM STRENGTH 40 MG
     Route: 058
     Dates: start: 20221108, end: 20221108
  2. REMICADE [Suspect]
     Active Substance: INFLIXIMAB
     Indication: Product used for unknown indication
     Route: 065

REACTIONS (13)
  - Blindness unilateral [Unknown]
  - Crohn^s disease [Unknown]
  - Frequent bowel movements [Unknown]
  - Asthenia [Unknown]
  - Ocular cyst [Unknown]
  - Urticaria [Unknown]
  - Hyperkeratosis [Unknown]
  - Eye inflammation [Unknown]
  - Tinea cruris [Unknown]
  - Unevaluable event [Unknown]
  - Mass [Unknown]
  - Psoriasis [Unknown]
  - Discomfort [Unknown]
